FAERS Safety Report 5515034-3 (Version None)
Quarter: 2007Q4

REPORT INFORMATION
  Report Type: 
  Country: None (occurrence: None)
  Receive Date: 20071113
  Receipt Date: 20061127
  Transmission Date: 20080405
  Serious: No
  Sender: FDA-Public Use
  Company Number: A0628675A

PATIENT
  Age: 62 Year
  Sex: Female

DRUGS (3)
  1. COREG [Suspect]
     Indication: MYOCARDIAL INFARCTION
     Dosage: 25MG TWICE PER DAY
     Route: 048
  2. DIOVAN [Concomitant]
  3. LASIX [Concomitant]

REACTIONS (2)
  - DYSPNOEA [None]
  - FATIGUE [None]
